FAERS Safety Report 8344365-7 (Version None)
Quarter: 2012Q2

REPORT INFORMATION
  Report Type: 
  Country: None (occurrence: None)
  Receive Date: 20120508
  Receipt Date: 20120501
  Transmission Date: 20120825
  Serious: Yes (Hospitalization)
  Sender: FDA-Public Use
  Company Number: US-BAYER-2012-043804

PATIENT
  Age: 42 Year
  Sex: Female
  Weight: 70.748 kg

DRUGS (4)
  1. YAZ [Suspect]
     Indication: CONTRACEPTION
  2. DROSPIRENONE AND ETHINYL ESTRADIOL [Suspect]
  3. ATORVASTATIN [Concomitant]
     Dosage: 40 MG, UNK
     Route: 048
  4. VICODIN [Concomitant]
     Indication: PAIN
     Dosage: 500/5 ONE TAB
     Route: 048

REACTIONS (1)
  - PULMONARY EMBOLISM [None]
